FAERS Safety Report 23458433 (Version 1)
Quarter: 2024Q1

REPORT INFORMATION
  Report Type: Spontaneous
  Country: US (occurrence: US)
  Receive Date: 20240130
  Receipt Date: 20240130
  Transmission Date: 20240410
  Serious: No
  Sender: FDA-Public Use
  Company Number: US-MYLANLABS-2024M1003082

PATIENT
  Sex: Female
  Weight: 62.59 kg

DRUGS (2)
  1. ESTRADIOL TRANSDERMAL SYSTEM [Suspect]
     Active Substance: ESTRADIOL
     Indication: Menopause
     Dosage: 0.05 MILLIGRAM, QD (1 PER WEEK)
     Route: 062
     Dates: start: 20230920, end: 20240109
  2. ESTRADIOL TRANSDERMAL SYSTEM [Suspect]
     Active Substance: ESTRADIOL
     Dosage: 0.05 MILLIGRAM, QD (1 PER WEEK)
     Route: 062
     Dates: start: 20230920, end: 20240109

REACTIONS (7)
  - Application site pruritus [Unknown]
  - Skin exfoliation [Unknown]
  - Application site mass [Unknown]
  - Application site irritation [Unknown]
  - Application site pain [Unknown]
  - Dry skin [Unknown]
  - Product adhesion issue [Unknown]
